FAERS Safety Report 12204680 (Version 1)
Quarter: 2016Q1

REPORT INFORMATION
  Report Type: Report from Study
  Country: JP (occurrence: JP)
  Receive Date: 20160323
  Receipt Date: 20160323
  Transmission Date: 20160526
  Serious: Yes (Other)
  Sender: FDA-Public Use
  Company Number: JP-MYLANLABS-2016M1012271

PATIENT

DRUGS (2)
  1. FLUCONAZOLE. [Concomitant]
     Active Substance: FLUCONAZOLE
     Indication: PRODUCT USED FOR UNKNOWN INDICATION
     Dosage: GIVEN ON ON DAY 4 PRIOR TO THE TRANSPLANTATION AND CONTINUED UNTIL DAY 35
     Route: 065
  2. MELPHALAN [Suspect]
     Active Substance: MELPHALAN
     Indication: IMMUNOSUPPRESSANT DRUG THERAPY
     Dosage: 100 MG/M2, ON DAY 4 AND DAY 3 PRIOR TO THE TRANSPLANTATION
     Route: 065

REACTIONS (4)
  - Cellulitis staphylococcal [Unknown]
  - Mucosal inflammation [Unknown]
  - Neutropenia [Unknown]
  - Diarrhoea [Unknown]
